FAERS Safety Report 12277643 (Version 1)
Quarter: 2016Q2

REPORT INFORMATION
  Report Type: Spontaneous
  Country: US (occurrence: US)
  Receive Date: 20160418
  Receipt Date: 20160418
  Transmission Date: 20160815
  Serious: Yes (Other)
  Sender: FDA-Public Use
  Company Number: US-MDT-ADR-2016-00221

PATIENT
  Age: 23 Year
  Sex: Female

DRUGS (11)
  1. FLEXERIL [Suspect]
     Active Substance: CYCLOBENZAPRINE HYDROCHLORIDE
  2. LIORESAL [Suspect]
     Active Substance: BACLOFEN
     Route: 037
  3. PRILOSEC [Suspect]
     Active Substance: OMEPRAZOLE MAGNESIUM
  4. ZYRTEC [Suspect]
     Active Substance: CETIRIZINE HYDROCHLORIDE
  5. VITAMIN B12 [Suspect]
     Active Substance: CYANOCOBALAMIN
  6. ALBUTEROL. [Suspect]
     Active Substance: ALBUTEROL
  7. FLOVENT [Suspect]
     Active Substance: FLUTICASONE PROPIONATE
     Route: 055
  8. VALIUM [Suspect]
     Active Substance: DIAZEPAM
  9. MINOCYCLINE [Suspect]
     Active Substance: MINOCYCLINE\MINOCYCLINE HYDROCHLORIDE
  10. LYRICA [Suspect]
     Active Substance: PREGABALIN
  11. LABOTEROL [Suspect]
     Active Substance: CLOTRIMAZOLE

REACTIONS (1)
  - Drug withdrawal syndrome [Recovered/Resolved]
